FAERS Safety Report 17178340 (Version 2)
Quarter: 2022Q1

REPORT INFORMATION
  Report Type: Spontaneous
  Country: MY (occurrence: MY)
  Receive Date: 20191219
  Receipt Date: 20220128
  Transmission Date: 20220423
  Serious: Yes (Death, Life-Threatening, Other)
  Sender: FDA-Public Use
  Company Number: MY-SUN PHARMACEUTICAL INDUSTRIES LTD-2019R1-231232

PATIENT
  Age: 30 Year
  Sex: Male

DRUGS (1)
  1. TESTOSTERONE [Suspect]
     Active Substance: TESTOSTERONE
     Indication: Product used for unknown indication
     Dosage: 750 MILLIGRAM FORTNIGHTLY
     Route: 030

REACTIONS (7)
  - Multiple organ dysfunction syndrome [Fatal]
  - Disseminated intravascular coagulation [Fatal]
  - Ecchymosis [Unknown]
  - Hepatomegaly [Unknown]
  - Lymphadenopathy [Unknown]
  - Anaplastic large cell lymphoma T- and null-cell types [Unknown]
  - Condition aggravated [Unknown]
